FAERS Safety Report 4701258-1 (Version None)
Quarter: 2005Q2

REPORT INFORMATION
  Report Type: 
  Country: None (occurrence: None)
  Receive Date: 20050628
  Receipt Date: 20010822
  Transmission Date: 20051028
  Serious: Yes (Hospitalization)
  Sender: FDA-Public Use
  Company Number: FR-MERCK-01086053

PATIENT
  Age: 0 Day
  Sex: Male
  Weight: 4 kg

DRUGS (8)
  1. CRIXIVAN [Suspect]
     Indication: HIV INFECTION
     Dates: end: 19990817
  2. STAVUDINE [Concomitant]
     Indication: HIV INFECTION
  3. LAMIVUDINE [Concomitant]
     Indication: HIV INFECTION
  4. NELFINAVIR MESYLATE [Concomitant]
     Indication: HIV INFECTION
     Dates: start: 19990818
  5. ZIDOVUDINE [Concomitant]
     Indication: PROPHYLAXIS AGAINST HIV INFECTION
     Dates: start: 20000309, end: 20000309
  6. STAVUDINE [Concomitant]
     Indication: PROPHYLAXIS AGAINST HIV INFECTION
     Dates: start: 20000309, end: 20000417
  7. PHLOROGLUCINOL AND TRIMETHYLPHLOROGLUCINOL [Concomitant]
  8. MAGNESIUM PHOSPHATE AND PYRIDOXAL PHOSPHATE [Concomitant]

REACTIONS (13)
  - ANAEMIA MACROCYTIC [None]
  - ANAEMIA NEONATAL [None]
  - BLOOD LACTIC ACID INCREASED [None]
  - CAESAREAN SECTION [None]
  - DRUG EXPOSURE DURING PREGNANCY [None]
  - HYPERTRIGLYCERIDAEMIA [None]
  - NEONATAL DISORDER [None]
  - NEUTROPENIA [None]
  - NEUTROPENIA NEONATAL [None]
  - PLATELET COUNT INCREASED [None]
  - PREGNANCY [None]
  - SPEECH DISORDER DEVELOPMENTAL [None]
  - VOMITING [None]
